FAERS Safety Report 6274594-8 (Version None)
Quarter: 2009Q3

REPORT INFORMATION
  Report Type: 
  Country: None (occurrence: None)
  Receive Date: 20090720
  Receipt Date: 20090715
  Transmission Date: 20100115
  Serious: Yes (Other)
  Sender: FDA-Public Use
  Company Number: ZA-AVENTIS-200916746GDDC

PATIENT
  Age: 42 Year
  Sex: Female

DRUGS (2)
  1. LANTUS [Suspect]
     Route: 058
     Dates: start: 20060101
  2. HUMALOG [Concomitant]
     Route: 058
     Dates: start: 19980101

REACTIONS (1)
  - BREAST CANCER [None]
